FAERS Safety Report 9230305 (Version 1)
Quarter: 2013Q1

REPORT INFORMATION
  Report Type: Spontaneous
  Country: US (occurrence: None)
  Receive Date: 20121026
  Receipt Date: 20121026
  Transmission Date: 20140127
  Serious: Yes (Death)
  Sender: FDA-Public Use
  Company Number: 1180585

PATIENT
  Sex: Male

DRUGS (1)
  1. BUPIVICAINE [Suspect]

REACTIONS (2)
  - Dyspnoea [None]
  - Concomitant disease aggravated [None]
